FAERS Safety Report 8022881-5 (Version None)
Quarter: 2012Q1

REPORT INFORMATION
  Report Type: 
  Country: None (occurrence: None)
  Receive Date: 20120104
  Receipt Date: 20111230
  Transmission Date: 20120608
  Serious: Yes (Hospitalization)
  Sender: FDA-Public Use
  Company Number: US-VERTEX PHARMACEUTICALS INC.-AE-2012-000091

PATIENT
  Sex: Male

DRUGS (6)
  1. METFORMIN HCL [Concomitant]
     Indication: DIABETES MELLITUS
  2. INSULIN [Concomitant]
     Indication: DIABETES MELLITUS
  3. LOVASTATIN [Concomitant]
     Indication: BLOOD CHOLESTEROL INCREASED
  4. PEGASYS [Concomitant]
     Indication: HEPATITIS C
     Dates: start: 20111113, end: 20111201
  5. INCIVEK [Suspect]
     Indication: HEPATITIS C
     Route: 048
     Dates: start: 20111113, end: 20111201
  6. RIBAVIRIN [Concomitant]
     Indication: HEPATITIS C
     Dates: start: 20111113, end: 20111201

REACTIONS (2)
  - RENAL IMPAIRMENT [None]
  - ANAEMIA [None]
